FAERS Safety Report 24081824 (Version 2)
Quarter: 2024Q3

REPORT INFORMATION
  Report Type: Spontaneous
  Country: BE (occurrence: BE)
  Receive Date: 20240712
  Receipt Date: 20240801
  Transmission Date: 20241017
  Serious: Yes (Hospitalization, Other)
  Sender: ROCHE
  Company Number: BE-ROCHE-3580138

PATIENT
  Age: 74 Year
  Sex: Male

DRUGS (4)
  1. OBINUTUZUMAB [Suspect]
     Active Substance: OBINUTUZUMAB
     Indication: Diffuse large B-cell lymphoma
     Route: 042
  2. GLOFITAMAB [Suspect]
     Active Substance: GLOFITAMAB
     Indication: Diffuse large B-cell lymphoma
     Route: 042
  3. GLOFITAMAB [Suspect]
     Active Substance: GLOFITAMAB
     Route: 042
  4. GLOFITAMAB [Suspect]
     Active Substance: GLOFITAMAB
     Route: 042

REACTIONS (4)
  - Neutropenia [Unknown]
  - Enterocolitis bacterial [Unknown]
  - Cytokine release syndrome [Recovered/Resolved]
  - Squamous cell carcinoma [Unknown]
